FAERS Safety Report 25717321 (Version 1)
Quarter: 2025Q3

REPORT INFORMATION
  Report Type: Spontaneous
  Country: US (occurrence: US)
  Receive Date: 20250822
  Receipt Date: 20250822
  Transmission Date: 20251020
  Serious: No
  Sender: SANOFI AVENTIS
  Company Number: US-SA-2025SA250339

PATIENT
  Age: 7 Year
  Sex: Female
  Weight: 22.27 kg

DRUGS (2)
  1. DUPIXENT [Suspect]
     Active Substance: DUPILUMAB
     Indication: Dermatitis atopic
     Route: 058
     Dates: start: 20250812, end: 20250812
  2. VTAMA [Concomitant]
     Active Substance: TAPINAROF

REACTIONS (2)
  - Periorbital swelling [Recovering/Resolving]
  - Eye contusion [Recovering/Resolving]

NARRATIVE: CASE EVENT DATE: 20250801
